FAERS Safety Report 9090494 (Version 1)
Quarter: 2013Q1

REPORT INFORMATION
  Report Type: Spontaneous
  Country: US (occurrence: US)
  Receive Date: 20130201
  Receipt Date: 20130201
  Transmission Date: 20140127
  Serious: No
  Sender: FDA-Public Use
  Company Number: US-PFIZER INC-2013040789

PATIENT
  Age: 38 Year
  Sex: Male
  Weight: 88.44 kg

DRUGS (3)
  1. LYRICA [Suspect]
     Indication: DIABETIC NEUROPATHY
     Dosage: UNK
     Dates: start: 2010
  2. LYRICA [Suspect]
     Dosage: 900 MG, 1X/DAY
     Dates: end: 201301
  3. PERCOCET [Concomitant]
     Indication: PAIN
     Dosage: 40 MG, DAILY

REACTIONS (3)
  - Overdose [Unknown]
  - Withdrawal syndrome [Not Recovered/Not Resolved]
  - Drug ineffective [Unknown]
